FAERS Safety Report 13276281 (Version 1)
Quarter: 2017Q1

REPORT INFORMATION
  Report Type: Spontaneous
  Country: IT (occurrence: IT)
  Receive Date: 20170228
  Receipt Date: 20170228
  Transmission Date: 20170428
  Serious: Yes (Hospitalization)
  Sender: FDA-Public Use
  Company Number: IT-AUROBINDO-AUR-APL-2016-09731

PATIENT
  Age: 19 Year
  Sex: Male
  Weight: 60 kg

DRUGS (3)
  1. LYSINE ASPIRIN [Suspect]
     Active Substance: ASPIRIN DL-LYSINE
     Indication: TOOTHACHE
     Dosage: UNK
     Route: 048
     Dates: start: 20160614, end: 20160622
  2. PARACETAMOL [Suspect]
     Active Substance: ACETAMINOPHEN
     Indication: TOOTHACHE
     Dosage: 500 MG, DAILY
     Route: 048
     Dates: start: 20160614, end: 20160622
  3. KETOPROFEN. [Suspect]
     Active Substance: KETOPROFEN
     Indication: TOOTHACHE
     Dosage: 80 MG, DAILY
     Route: 048
     Dates: start: 20160614, end: 20160622

REACTIONS (1)
  - Renal failure [Recovered/Resolved]

NARRATIVE: CASE EVENT DATE: 20160624
